FAERS Safety Report 16861837 (Version 5)
Quarter: 2020Q1

REPORT INFORMATION
  Report Type: Spontaneous
  Country: JP (occurrence: JP)
  Receive Date: 20190927
  Receipt Date: 20200316
  Transmission Date: 20200409
  Serious: Yes (Death, Life-Threatening)
  Sender: FDA-Public Use
  Company Number: JP-BEH-2019107457

PATIENT
  Age: 83 Year
  Sex: Male
  Weight: 66.5 kg

DRUGS (9)
  1. KCENTRA [Suspect]
     Active Substance: COAGULATION FACTOR IX HUMAN\COAGULATION FACTOR VII HUMAN\COAGULATION FACTOR X HUMAN\PROTEIN C\PROTEIN S HUMAN\PROTHROMBIN
     Dosage: 1000 INTERNATIONAL UNIT
     Route: 042
     Dates: start: 20190916
  2. TRANEXAMIC ACID. [Concomitant]
     Active Substance: TRANEXAMIC ACID
     Indication: HAEMOSTASIS
     Dosage: 1000 MILLIGRAM, DAILY
     Route: 042
     Dates: start: 20190916
  3. ADONA [CARBAZOCHROME SODIUM SULFONATE] [Concomitant]
     Active Substance: CARBAZOCHROME SODIUM SULFONATE
     Indication: HAEMOSTASIS
     Dosage: 100 MILLIGRAM, DAILY
     Route: 042
     Dates: start: 20190916
  4. FOSTOIN [Concomitant]
     Active Substance: FOSPHENYTOIN SODIUM
     Indication: SEIZURE
     Dosage: 1350 MILLIGRAM, DAILY
     Route: 042
     Dates: start: 20190916
  5. WARFARIN [Concomitant]
     Active Substance: WARFARIN
     Route: 048
  6. KCENTRA [Suspect]
     Active Substance: COAGULATION FACTOR IX HUMAN\COAGULATION FACTOR VII HUMAN\COAGULATION FACTOR X HUMAN\PROTEIN C\PROTEIN S HUMAN\PROTHROMBIN
     Indication: TRAUMATIC INTRACRANIAL HAEMORRHAGE
     Dosage: 500 INTERNATIONAL UNIT
     Route: 042
     Dates: start: 20190916
  7. KCENTRA [Suspect]
     Active Substance: COAGULATION FACTOR IX HUMAN\COAGULATION FACTOR VII HUMAN\COAGULATION FACTOR X HUMAN\PROTEIN C\PROTEIN S HUMAN\PROTHROMBIN
     Indication: TRAUMATIC INTRACRANIAL HAEMORRHAGE
     Dosage: 500 INTERNATIONAL UNIT
     Route: 042
     Dates: start: 20190916
  8. KCENTRA [Suspect]
     Active Substance: COAGULATION FACTOR IX HUMAN\COAGULATION FACTOR VII HUMAN\COAGULATION FACTOR X HUMAN\PROTEIN C\PROTEIN S HUMAN\PROTHROMBIN
     Dosage: 1000 INTERNATIONAL UNIT
     Route: 042
     Dates: start: 20190916
  9. KAYTWO [Suspect]
     Active Substance: MENATETRENONE
     Indication: HAEMOSTASIS
     Dosage: 10 MILLIGRAM, 1 DAY
     Route: 042
     Dates: start: 20190916, end: 20190916

REACTIONS (2)
  - Disseminated intravascular coagulation [Fatal]
  - Cerebral haemorrhage [Fatal]

NARRATIVE: CASE EVENT DATE: 20190916
